FAERS Safety Report 6256926-X (Version None)
Quarter: 2009Q3

REPORT INFORMATION
  Report Type: 
  Country: None (occurrence: None)
  Receive Date: 20090706
  Receipt Date: 20090625
  Transmission Date: 20100115
  Serious: Yes (Other)
  Sender: FDA-Public Use
  Company Number: PHHY2009JP24388

PATIENT
  Age: 21 Year
  Sex: Female

DRUGS (3)
  1. NEORAL [Suspect]
     Indication: BEHCET'S SYNDROME
     Dosage: 200 MG DAILY
     Route: 048
     Dates: start: 20060301, end: 20070701
  2. NEORAL [Suspect]
     Dosage: 150 MG DAILY
     Route: 048
     Dates: start: 20070701, end: 20071001
  3. MESALAZINE [Concomitant]

REACTIONS (7)
  - ABDOMINAL PAIN [None]
  - BEHCET'S SYNDROME [None]
  - DRUG INEFFECTIVE [None]
  - GASTROINTESTINAL INFLAMMATION [None]
  - GENITAL ULCERATION [None]
  - ILEAL ULCER [None]
  - SKIN LESION [None]
